FAERS Safety Report 24737079 (Version 1)
Quarter: 2024Q4

REPORT INFORMATION
  Report Type: Spontaneous
  Country: CA (occurrence: CA)
  Receive Date: 20241216
  Receipt Date: 20241216
  Transmission Date: 20250115
  Serious: Yes (Hospitalization)
  Sender: HIKMA
  Company Number: CA-HIKMA PHARMACEUTICALS USA INC.-CA-H14001-24-11448

PATIENT
  Age: 11 Year
  Sex: Female

DRUGS (12)
  1. BISACODYL [Suspect]
     Active Substance: BISACODYL
     Indication: Neurogenic bowel
     Dosage: UNK
     Route: 065
  2. BISACODYL [Suspect]
     Active Substance: BISACODYL
     Indication: Constipation
  3. BISACODYL [Suspect]
     Active Substance: BISACODYL
     Indication: Anal incontinence
  4. GLYCERIN [Suspect]
     Active Substance: GLYCERIN
     Indication: Neurogenic bowel
     Dosage: UNK
     Route: 065
  5. GLYCERIN [Suspect]
     Active Substance: GLYCERIN
     Indication: Constipation
  6. GLYCERIN [Suspect]
     Active Substance: GLYCERIN
     Indication: Anal incontinence
  7. PEG 3350 [Suspect]
     Active Substance: POLYETHYLENE GLYCOL 3350
     Indication: Neurogenic bowel
     Dosage: UNK
     Route: 065
  8. PEG 3350 [Suspect]
     Active Substance: POLYETHYLENE GLYCOL 3350
     Indication: Constipation
  9. PEG 3350 [Suspect]
     Active Substance: POLYETHYLENE GLYCOL 3350
     Indication: Constipation
  10. SODIUM CHLORIDE [Suspect]
     Active Substance: SODIUM CHLORIDE
     Indication: Constipation
     Dosage: 300 MILLILITER
     Route: 065
  11. SODIUM CHLORIDE [Suspect]
     Active Substance: SODIUM CHLORIDE
     Indication: Neurogenic bowel
     Dosage: UNK
     Route: 065
  12. SODIUM CHLORIDE [Suspect]
     Active Substance: SODIUM CHLORIDE
     Indication: Anal incontinence

REACTIONS (3)
  - Abdominal distension [Recovered/Resolved]
  - Abdominal pain [Recovered/Resolved]
  - Vomiting [Recovered/Resolved]
